FAERS Safety Report 5225335-4 (Version None)
Quarter: 2007Q1

REPORT INFORMATION
  Report Type: 
  Country: None (occurrence: None)
  Receive Date: 20070131
  Receipt Date: 20070119
  Transmission Date: 20070707
  Serious: Yes (Death)
  Sender: FDA-Public Use
  Company Number: PT-PFIZER INC-2007005324

PATIENT
  Age: 14 Year
  Sex: Female

DRUGS (1)
  1. CYTOTEC [Suspect]
     Indication: ABORTION
     Route: 048

REACTIONS (2)
  - GASTRIC DISORDER [None]
  - OESOPHAGEAL DISORDER [None]
